FAERS Safety Report 23556025 (Version 1)
Quarter: 2024Q1

REPORT INFORMATION
  Report Type: Spontaneous
  Country: FR (occurrence: FR)
  Receive Date: 20240222
  Receipt Date: 20240222
  Transmission Date: 20240410
  Serious: Yes (Hospitalization)
  Sender: FDA-Public Use
  Company Number: None

PATIENT
  Age: 40 Year
  Sex: Male
  Weight: 75 kg

DRUGS (3)
  1. RINVOQ [Suspect]
     Active Substance: UPADACITINIB
     Indication: Crohn^s disease
     Dosage: FORM STRENGTH: 30 MG
     Route: 048
     Dates: start: 202307
  2. URSODIOL [Concomitant]
     Active Substance: URSODIOL
     Indication: Product used for unknown indication
     Dosage: FORM STRENGTH: 500 MG, FILM-COATED SCORED TABLET
  3. PREDNISOLONE [Concomitant]
     Active Substance: PREDNISOLONE
     Indication: Product used for unknown indication

REACTIONS (1)
  - Rectosigmoid cancer metastatic [Recovering/Resolving]

NARRATIVE: CASE EVENT DATE: 20231201
